FAERS Safety Report 6666721-5 (Version None)
Quarter: 2010Q1

REPORT INFORMATION
  Report Type: 
  Country: None (occurrence: None)
  Receive Date: 20100331
  Receipt Date: 20100322
  Transmission Date: 20100710
  Serious: Yes (Other)
  Sender: FDA-Public Use
  Company Number: 544364

PATIENT
  Age: 82 Year
  Sex: Female

DRUGS (1)
  1. ATROPINE SULFATE [Suspect]
     Indication: BRADYCARDIA
     Dosage: .5 MG, INTRAVENOUS
     Route: 042

REACTIONS (5)
  - CHEST PAIN [None]
  - CONDITION AGGRAVATED [None]
  - ELECTROCARDIOGRAM T WAVE INVERSION [None]
  - RALES [None]
  - STRESS CARDIOMYOPATHY [None]
